FAERS Safety Report 9296304 (Version 1)
Quarter: 2013Q2

REPORT INFORMATION
  Report Type: Spontaneous
  Country: DE (occurrence: DE)
  Receive Date: 20130517
  Receipt Date: 20130517
  Transmission Date: 20140414
  Serious: Yes (Other)
  Sender: FDA-Public Use
  Company Number: DE-SANOFI-AVENTIS-2013SA048449

PATIENT
  Sex: Male

DRUGS (1)
  1. CLEXANE [Suspect]
     Indication: PRODUCT USED FOR UNKNOWN INDICATION
     Route: 065
     Dates: start: 2013, end: 2013

REACTIONS (3)
  - Cerebrovascular accident [Unknown]
  - Mitochondrial encephalomyopathy [Unknown]
  - Musculoskeletal discomfort [Unknown]
